FAERS Safety Report 8488770-7 (Version None)
Quarter: 2012Q2

REPORT INFORMATION
  Report Type: 
  Country: None (occurrence: None)
  Receive Date: 20120626
  Receipt Date: 20120611
  Transmission Date: 20120825
  Serious: Yes (Other)
  Sender: FDA-Public Use
  Company Number: 2011MA014737

PATIENT
  Sex: Female
  Weight: 72.5755 kg

DRUGS (5)
  1. BUSPAR [Concomitant]
  2. SLEEP MEDICATIONS [Concomitant]
  3. PROTONIX [Concomitant]
  4. METOCLOPRAMIDE [Suspect]
     Dates: start: 20100101, end: 20100801
  5. NEXIUM [Concomitant]

REACTIONS (7)
  - DYSPEPSIA [None]
  - INJURY [None]
  - TARDIVE DYSKINESIA [None]
  - ECONOMIC PROBLEM [None]
  - EMOTIONAL DISORDER [None]
  - GASTROOESOPHAGEAL REFLUX DISEASE [None]
  - RESTLESS LEGS SYNDROME [None]
